FAERS Safety Report 10100772 (Version 1)
Quarter: 2014Q2

REPORT INFORMATION
  Report Type: Spontaneous
  Country: CL (occurrence: CL)
  Receive Date: 20140423
  Receipt Date: 20140423
  Transmission Date: 20141212
  Serious: Yes (Death, Other)
  Sender: FDA-Public Use
  Company Number: PHHY2014CL046499

PATIENT
  Age: 18 Year
  Sex: Female

DRUGS (1)
  1. AMOXICILLIN [Suspect]

REACTIONS (14)
  - Cardiac failure [Fatal]
  - Dyspnoea [Fatal]
  - Cyanosis [Fatal]
  - Oedema peripheral [Fatal]
  - Eosinophilic myocarditis [Fatal]
  - Myocardial necrosis [Fatal]
  - Myocarditis [Fatal]
  - Loss of consciousness [Recovered/Resolved]
  - Drug hypersensitivity [Unknown]
  - Rash [Unknown]
  - Oedema [Unknown]
  - Pruritus generalised [Unknown]
  - Nausea [Unknown]
  - Vomiting [Unknown]
